FAERS Safety Report 23201073 (Version 2)
Quarter: 2024Q1

REPORT INFORMATION
  Report Type: Other
  Country: US (occurrence: US)
  Receive Date: 20231118
  Receipt Date: 20240210
  Transmission Date: 20240410
  Serious: No
  Sender: FDA-Public Use
  Company Number: US-TRAVERE-2023TVT00506

PATIENT
  Age: 31 Year
  Sex: Male

DRUGS (2)
  1. FILSPARI [Suspect]
     Active Substance: SPARSENTAN
     Indication: IgA nephropathy
     Dosage: 200 MG
     Route: 048
     Dates: start: 20230830
  2. FILSPARI [Suspect]
     Active Substance: SPARSENTAN
     Dosage: 200 MG
     Route: 048
     Dates: start: 20230913

REACTIONS (4)
  - Oedema peripheral [Unknown]
  - Product dose omission issue [Unknown]
  - Adverse event [Unknown]
  - Flank pain [Unknown]
